FAERS Safety Report 6345697-4 (Version None)
Quarter: 2009Q3

REPORT INFORMATION
  Report Type: 
  Country: None (occurrence: None)
  Receive Date: 20090909
  Receipt Date: 20090821
  Transmission Date: 20100115
  Serious: Yes (Hospitalization)
  Sender: FDA-Public Use
  Company Number: US-ASTRAZENECA-2009SE06057

PATIENT
  Age: 22744 Day
  Sex: Female
  Weight: 65.8 kg

DRUGS (9)
  1. SYMBICORT [Suspect]
     Dosage: 160/4.5 UG; 2 PUFFS
     Route: 055
     Dates: start: 20070101
  2. LISINOPRIL [Concomitant]
     Indication: HYPERTENSION
     Route: 048
  3. LISINOPRIL [Concomitant]
     Route: 048
  4. PREDNISONE TAB [Concomitant]
     Route: 048
  5. PREDNISONE TAB [Concomitant]
     Route: 048
  6. ATIVAN [Concomitant]
     Indication: ANXIETY
     Dosage: PRN
     Route: 048
  7. CELEXA [Concomitant]
     Indication: ANXIETY
     Route: 048
  8. DILTIAZEM [Concomitant]
     Route: 048
  9. ASPIRIN [Concomitant]
     Route: 048

REACTIONS (3)
  - HAEMORRHAGE [None]
  - PNEUMONIA [None]
  - SEPSIS [None]
